FAERS Safety Report 15415186 (Version 4)
Quarter: 2018Q4

REPORT INFORMATION
  Report Type: Report from Study
  Country: US (occurrence: US)
  Receive Date: 20180921
  Receipt Date: 20181114
  Transmission Date: 20190204
  Serious: Yes (Death, Hospitalization, Other)
  Sender: FDA-Public Use
  Company Number: US-ACTELION-A-NJ2018-179045

PATIENT
  Age: 45 Year
  Sex: Female
  Weight: 72.11 kg

DRUGS (2)
  1. VELETRI [Suspect]
     Active Substance: EPOPROSTENOL
     Indication: PULMONARY ARTERIAL HYPERTENSION
     Dosage: 32.5 NG/KG, PER MIN
     Route: 042
  2. OPSUMIT [Suspect]
     Active Substance: MACITENTAN
     Indication: PULMONARY ARTERIAL HYPERTENSION
     Dosage: 10 MG, QD
     Route: 048

REACTIONS (5)
  - Thyroid operation [Fatal]
  - Thyroid cancer [Unknown]
  - Thyroid disorder [Unknown]
  - Central venous catheterisation [Unknown]
  - Device dislocation [Unknown]

NARRATIVE: CASE EVENT DATE: 20181017
